FAERS Safety Report 9642115 (Version 2)
Quarter: 2013Q4

REPORT INFORMATION
  Report Type: Report from Study
  Country: AR (occurrence: AR)
  Receive Date: 20131023
  Receipt Date: 20131024
  Transmission Date: 20140711
  Serious: Yes (Other)
  Sender: FDA-Public Use
  Company Number: AR-ROCHE-1292355

PATIENT
  Sex: Female

DRUGS (3)
  1. RANIBIZUMAB [Suspect]
     Indication: MACULOPATHY
     Route: 050
     Dates: start: 2013
  2. RANIBIZUMAB [Suspect]
     Route: 050
     Dates: start: 201307
  3. RANIBIZUMAB [Suspect]
     Route: 050
     Dates: start: 201309

REACTIONS (3)
  - Maculopathy [Unknown]
  - Drug ineffective [Unknown]
  - Visual impairment [Unknown]
